FAERS Safety Report 6536958-4 (Version None)
Quarter: 2010Q1

REPORT INFORMATION
  Report Type: 
  Country: None (occurrence: None)
  Receive Date: 20100105
  Receipt Date: 20091221
  Transmission Date: 20100710
  Serious: Yes (Life-Threatening, Hospitalization, Other)
  Sender: FDA-Public Use
  Company Number: 2009AP004312

PATIENT
  Age: 39 Year
  Sex: Male

DRUGS (10)
  1. OMEPRAZOLE [Suspect]
     Dates: start: 20090217
  2. SIMVASTATIN [Suspect]
     Indication: BLOOD CHOLESTEROL INCREASED
     Dosage: 40 MG;PO
     Route: 048
     Dates: start: 20090217
  3. CLOMIPRAMINE HCL [Suspect]
     Indication: DEPRESSION
     Dosage: 200 MG;PO;QD
     Route: 048
     Dates: start: 20090217
  4. CLOZARIL [Suspect]
     Indication: SCHIZOPHRENIA
     Dosage: 600 MG;PO;QD
     Route: 048
     Dates: start: 20031202
  5. CLOZARIL [Suspect]
     Indication: SCHIZOPHRENIA
     Dosage: 600 MG;PO;QD
     Route: 048
     Dates: start: 20090217
  6. HYOSCINE HBR HYT [Suspect]
     Dates: start: 20090217
  7. LISINOPRIL [Suspect]
     Indication: HYPERTENSION
     Dosage: 5 MG;QD PO
     Route: 048
     Dates: start: 20090217
  8. METFORMIN HCL [Suspect]
     Indication: TYPE 2 DIABETES MELLITUS
     Dosage: 500 MG;PO;TID
     Route: 048
     Dates: start: 20090217
  9. SENNA (SENNA) [Suspect]
     Indication: CONSTIPATION
     Dosage: PO
     Route: 048
  10. THIAMINE (THIAMINE) [Concomitant]

REACTIONS (6)
  - AGITATION [None]
  - COMA SCALE ABNORMAL [None]
  - HAEMOGLOBIN DECREASED [None]
  - MULTIPLE DRUG OVERDOSE [None]
  - NEUTROPHIL COUNT INCREASED [None]
  - WHITE BLOOD CELL COUNT INCREASED [None]
